FAERS Safety Report 10062924 (Version 1)
Quarter: 2014Q2

REPORT INFORMATION
  Report Type: Spontaneous
  Country: BR (occurrence: BR)
  Receive Date: 20140407
  Receipt Date: 20140407
  Transmission Date: 20141212
  Serious: Yes (Other)
  Sender: FDA-Public Use
  Company Number: BR-TEVA-473375ISR

PATIENT
  Age: 66 Year
  Sex: Male

DRUGS (1)
  1. TEVAFOLIN [Suspect]
     Indication: RECTAL ADENOMA
     Route: 042

REACTIONS (2)
  - Hyperthermia [Unknown]
  - Tremor [Unknown]
